FAERS Safety Report 17873500 (Version 1)
Quarter: 2020Q2

REPORT INFORMATION
  Report Type: Other
  Country: GB (occurrence: GB)
  Receive Date: 20200609
  Receipt Date: 20200609
  Transmission Date: 20200714
  Serious: Yes (Other)
  Sender: FDA-Public Use
  Company Number: GB-CELLTRION INC.-2020GB022064

PATIENT

DRUGS (9)
  1. REMSIMA [Suspect]
     Active Substance: INFLIXIMAB
     Dosage: 450 MG
     Route: 065
     Dates: start: 20200528
  2. WATER FOR INJECTIONS [Suspect]
     Active Substance: WATER
     Dosage: UNK
     Route: 065
     Dates: end: 202005
  3. REMSIMA [Suspect]
     Active Substance: INFLIXIMAB
     Indication: PRODUCT USED FOR UNKNOWN INDICATION
     Dosage: 450 MG
     Route: 065
     Dates: end: 202005
  4. WATER FOR INJECTIONS [Suspect]
     Active Substance: WATER
     Indication: MEDICATION DILUTION
     Dosage: UNK
     Route: 065
     Dates: end: 202005
  5. SODIUM CHLORIDE 0.9% [Suspect]
     Active Substance: SODIUM CHLORIDE
     Dosage: UNK
     Route: 065
     Dates: start: 20200528
  6. REMSIMA [Suspect]
     Active Substance: INFLIXIMAB
     Dosage: 450 MG
     Route: 065
     Dates: end: 202005
  7. SODIUM CHLORIDE 0.9% [Suspect]
     Active Substance: SODIUM CHLORIDE
     Indication: MEDICATION DILUTION
     Dosage: UNK
     Route: 065
     Dates: end: 202005
  8. SODIUM CHLORIDE 0.9% [Suspect]
     Active Substance: SODIUM CHLORIDE
     Dosage: UNK
     Route: 065
     Dates: end: 202005
  9. WATER FOR INJECTIONS [Suspect]
     Active Substance: WATER
     Dosage: UNK
     Route: 065
     Dates: start: 20200528

REACTIONS (2)
  - Crohn^s disease [Unknown]
  - Ear infection [Not Recovered/Not Resolved]

NARRATIVE: CASE EVENT DATE: 20200528
